FAERS Safety Report 14891922 (Version 2)
Quarter: 2018Q2

REPORT INFORMATION
  Report Type: Spontaneous
  Country: US (occurrence: US)
  Receive Date: 20180514
  Receipt Date: 20180601
  Transmission Date: 20180711
  Serious: Yes (Death, Other)
  Sender: FDA-Public Use
  Company Number: US-PFIZER INC-2018194281

PATIENT
  Sex: Male

DRUGS (2)
  1. PROPOFOL. [Suspect]
     Active Substance: PROPOFOL
     Indication: INSOMNIA
  2. PROPOFOL. [Suspect]
     Active Substance: PROPOFOL
     Indication: AGITATION
     Dosage: UNK

REACTIONS (3)
  - Respiratory arrest [Fatal]
  - Product use issue [Unknown]
  - Product use in unapproved indication [Unknown]
